FAERS Safety Report 8611921-8 (Version None)
Quarter: 2012Q3

REPORT INFORMATION
  Report Type: 
  Country: None (occurrence: None)
  Receive Date: 20120809
  Receipt Date: 20120629
  Transmission Date: 20120928
  Serious: Yes (Other)
  Sender: FDA-Public Use
  Company Number: GPVG-ADR-2012-48

PATIENT
  Age: 31 Year
  Sex: Female

DRUGS (14)
  1. LAMOTRIGINE [Concomitant]
  2. CLONAZEPAM [Concomitant]
  3. PHENOBARBITAL TAB [Concomitant]
  4. ZONISAMIDE [Concomitant]
  5. LACSOAMIDE (LACOSAMIDE) 150MG [Suspect]
     Indication: PRODUCT USED FOR UNKNOWN INDICATION
     Dosage: 150 MG, BID
  6. MIDAZOLAM HCL [Concomitant]
  7. VALPROATE (VALPROATE) [Concomitant]
  8. VIGABATRIN (VIGABATRIN) [Concomitant]
  9. PHENOBARITONE (PHENOBARBITAL + PHENOBARBITONE) [Concomitant]
  10. LEVETIRACETAM [Suspect]
     Indication: PRODUCT USED FOR UNKNOWN INDICATION
  11. CLOBAZAM [Concomitant]
  12. PHENYTOIN (PHENYTOIN) [Concomitant]
  13. PIRACETAM (PIRACETAM) [Suspect]
  14. TOPIRMATE (TOPIRMATE) [Concomitant]

REACTIONS (4)
  - GAIT DISTURBANCE [None]
  - PARTIAL SEIZURES [None]
  - DRUG INEFFECTIVE [None]
  - GENERAL PHYSICAL HEALTH DETERIORATION [None]
